FAERS Safety Report 8083296-7 (Version None)
Quarter: 2012Q1

REPORT INFORMATION
  Report Type: 
  Country: None (occurrence: None)
  Receive Date: 20120127
  Receipt Date: 20110203
  Transmission Date: 20120608
  Serious: No
  Sender: FDA-Public Use
  Company Number: US-ABBOTT-11P-163-0702617-00

PATIENT
  Age: 73 Year
  Sex: Female

DRUGS (3)
  1. HUMIRA [Suspect]
     Indication: RHEUMATOID ARTHRITIS
     Dates: start: 20100101, end: 20100401
  2. NAPROXEN (ALEVE) [Concomitant]
     Indication: ARTHRALGIA
     Dosage: OTC
  3. HUMIRA [Suspect]
     Dates: start: 20101101

REACTIONS (3)
  - JOINT SWELLING [None]
  - UVEITIS [None]
  - ARTHRALGIA [None]
